FAERS Safety Report 5498418-1 (Version None)
Quarter: 2007Q4

REPORT INFORMATION
  Report Type: 
  Country: None (occurrence: None)
  Receive Date: 20071024
  Receipt Date: 20071009
  Transmission Date: 20080405
  Serious: Yes (Hospitalization, Disabling)
  Sender: FDA-Public Use
  Company Number: ABMIH-07-0854

PATIENT
  Age: 78 Year
  Sex: Female
  Weight: 51 kg

DRUGS (7)
  1. ABRAXANE [Suspect]
     Indication: BREAST CANCER METASTATIC
     Dosage: 150 MG, INTRAVENOUS
     Route: 042
     Dates: start: 20070523, end: 20070829
  2. MULTIVITAMIN (VITAMINS) [Concomitant]
  3. OSCAL (CALCIUM CARBONATE) [Concomitant]
  4. ASPIRIN [Concomitant]
  5. LISINOPRIL [Concomitant]
  6. COREG [Concomitant]
  7. MIRALAX [Concomitant]

REACTIONS (2)
  - INAPPROPRIATE ANTIDIURETIC HORMONE SECRETION [None]
  - METASTASES TO MENINGES [None]
